FAERS Safety Report 9009088 (Version 1)
Quarter: 2013Q1

REPORT INFORMATION
  Report Type: Spontaneous
  Country: GB (occurrence: GB)
  Receive Date: 20130111
  Receipt Date: 20130111
  Transmission Date: 20140127
  Serious: Yes (Life-Threatening, Hospitalization)
  Sender: FDA-Public Use
  Company Number: GB-ASTRAZENECA-2013SE01364

PATIENT
  Age: 66 Year
  Sex: Female
  Weight: 68 kg

DRUGS (1)
  1. CRESTOR [Suspect]
     Indication: TYPE IIA HYPERLIPIDAEMIA
     Route: 048
     Dates: start: 20070628, end: 20121129

REACTIONS (4)
  - Pain [Recovering/Resolving]
  - Anaemia [Not Recovered/Not Resolved]
  - Contusion [Recovering/Resolving]
  - Muscle haemorrhage [Recovering/Resolving]
